FAERS Safety Report 25153290 (Version 1)
Quarter: 2025Q2

REPORT INFORMATION
  Report Type: Spontaneous
  Country: US (occurrence: US)
  Receive Date: 20250403
  Receipt Date: 20250403
  Transmission Date: 20250717
  Serious: Yes (Other)
  Sender: SANOFI AVENTIS
  Company Number: US-SA-2025SA094298

PATIENT
  Sex: Male
  Weight: 70.45 kg

DRUGS (4)
  1. KEVZARA [Suspect]
     Active Substance: SARILUMAB
     Indication: Rheumatoid arthritis
     Dosage: 200 MG, QOW
     Route: 058
  2. VITAMIN D3 [Concomitant]
     Active Substance: CHOLECALCIFEROL
  3. ZINC [Concomitant]
     Active Substance: ZINC
  4. PREDNISONE [Concomitant]
     Active Substance: PREDNISONE
     Dates: start: 2012

REACTIONS (7)
  - Hip surgery [Unknown]
  - Weight decreased [Unknown]
  - Illness [Unknown]
  - Skin disorder [Unknown]
  - Condition aggravated [Unknown]
  - Skin swelling [Unknown]
  - Skin ulcer [Unknown]

NARRATIVE: CASE EVENT DATE: 20170101
